FAERS Safety Report 21122379 (Version 2)
Quarter: 2022Q3

REPORT INFORMATION
  Report Type: Spontaneous
  Country: US (occurrence: US)
  Receive Date: 20220723
  Receipt Date: 20220802
  Transmission Date: 20221026
  Serious: Yes (Other)
  Sender: FDA-Public Use
  Company Number: US-drreddys-SPO/USA/22/0152453

PATIENT
  Age: 30 Year
  Sex: Female
  Weight: 100 kg

DRUGS (2)
  1. HEPARIN SODIUM [Suspect]
     Active Substance: HEPARIN SODIUM
     Indication: Anticoagulant therapy
     Dosage: THERAPEUTIC HEPARIN
  2. RIBAVIRIN [Concomitant]
     Active Substance: RIBAVIRIN
     Indication: COVID-19

REACTIONS (1)
  - Heparin-induced thrombocytopenia [Unknown]
